FAERS Safety Report 7985601-6 (Version None)
Quarter: 2011Q4

REPORT INFORMATION
  Report Type: 
  Country: None (occurrence: None)
  Receive Date: 20111216
  Receipt Date: 20111212
  Transmission Date: 20120403
  Serious: Yes (Hospitalization, Other)
  Sender: FDA-Public Use
  Company Number: BR-ABBOTT-11P-020-0711082-00

PATIENT
  Sex: Female
  Weight: 54 kg

DRUGS (9)
  1. OSTEOFORM [Concomitant]
     Indication: BONE DISORDER
     Route: 048
  2. HUMIRA [Suspect]
     Indication: RHEUMATOID ARTHRITIS
     Route: 058
     Dates: start: 20090101
  3. CHLOROQUINE / MELOXICAN/ PREDNISONE [Concomitant]
     Indication: RHEUMATOID ARTHRITIS
     Route: 048
  4. OMEPRAZOLE [Concomitant]
     Indication: PROPHYLAXIS
     Route: 048
  5. FERROUS SULFATE TAB [Concomitant]
     Indication: ANAEMIA
     Route: 048
  6. COMBINED MEDICATION [Concomitant]
     Indication: ARTHRITIS
     Route: 048
  7. ENALAPRIL MALEATE [Concomitant]
     Indication: HYPERTENSION
     Route: 048
  8. OMEPRAZOLE [Concomitant]
     Indication: GASTRIC DISORDER
  9. ICTUS [Concomitant]
     Indication: HYPERTENSION
     Route: 048

REACTIONS (9)
  - LOWER LIMB FRACTURE [None]
  - MUSCULOSKELETAL PAIN [None]
  - LOCALISED INFECTION [None]
  - DEVICE DISLOCATION [None]
  - ARTHRALGIA [None]
  - PAIN IN EXTREMITY [None]
  - FEMUR FRACTURE [None]
  - FALL [None]
  - ANAEMIA [None]
